FAERS Safety Report 6626649-3 (Version None)
Quarter: 2010Q1

REPORT INFORMATION
  Report Type: 
  Country: None (occurrence: None)
  Receive Date: 20100305
  Receipt Date: 20100301
  Transmission Date: 20100710
  Serious: Yes (Other)
  Sender: FDA-Public Use
  Company Number: 1000003105

PATIENT
  Age: 35 Year
  Sex: Male

DRUGS (3)
  1. LEXAPRO [Suspect]
     Indication: DEPRESSION
  2. XANAX [Concomitant]
  3. ALCOHOL [Concomitant]

REACTIONS (4)
  - AGITATION [None]
  - ALCOHOL USE [None]
  - FEELING ABNORMAL [None]
  - HOMICIDE [None]
